FAERS Safety Report 6421506-X (Version None)
Quarter: 2009Q4

REPORT INFORMATION
  Report Type: 
  Country: None (occurrence: None)
  Receive Date: 20091029
  Receipt Date: 20091029
  Transmission Date: 20100525
  Serious: Yes (Death)
  Sender: FDA-Public Use
  Company Number: None

PATIENT
  Sex: Female
  Weight: 56.2 kg

DRUGS (3)
  1. EFFIENT [Suspect]
     Indication: CATHETERISATION CARDIAC
     Dosage: 60 MG X1 PO
     Route: 048
     Dates: start: 20091012
  2. EFFIENT [Suspect]
     Indication: PERCUTANEOUS CORONARY INTERVENTION
     Dosage: 60 MG X1 PO
     Route: 048
     Dates: start: 20091012
  3. ANGIOMAX INFUSION [Concomitant]

REACTIONS (3)
  - BLOOD PRESSURE INCREASED [None]
  - CARDIO-RESPIRATORY ARREST [None]
  - HAEMORRHAGE INTRACRANIAL [None]
